FAERS Safety Report 6395888-1 (Version None)
Quarter: 2009Q4

REPORT INFORMATION
  Report Type: 
  Country: None (occurrence: None)
  Receive Date: 20091009
  Receipt Date: 20090810
  Transmission Date: 20100525
  Serious: No
  Sender: FDA-Public Use
  Company Number: A0801370A

PATIENT
  Age: 53 Year
  Sex: Female

DRUGS (6)
  1. TYKERB [Suspect]
     Indication: BREAST CANCER
     Route: 048
     Dates: start: 20090731
  2. ZOFRAN [Concomitant]
  3. NORTRIPTYLINE [Concomitant]
  4. ADVAIR DISKUS 100/50 [Concomitant]
  5. DEXAMETHASONE 0.5MG TAB [Concomitant]
  6. PRILOSEC [Concomitant]

REACTIONS (1)
  - RASH [None]
